FAERS Safety Report 21440848 (Version 2)
Quarter: 2023Q1

REPORT INFORMATION
  Report Type: Report from Study
  Country: US (occurrence: US)
  Receive Date: 20221011
  Receipt Date: 20230110
  Transmission Date: 20230417
  Serious: No
  Sender: FDA-Public Use
  Company Number: US-ABBVIE-4149129

PATIENT
  Sex: Male
  Weight: 81.646 kg

DRUGS (1)
  1. SKYRIZI [Suspect]
     Active Substance: RISANKIZUMAB-RZAA
     Indication: Psoriasis
     Route: 058

REACTIONS (2)
  - Fungal skin infection [Unknown]
  - Skin mass [Unknown]
